FAERS Safety Report 8399999-0 (Version None)
Quarter: 2012Q2

REPORT INFORMATION
  Report Type: 
  Country: None (occurrence: None)
  Receive Date: 20120525
  Receipt Date: 20120511
  Transmission Date: 20120825
  Serious: Yes (Hospitalization)
  Sender: FDA-Public Use
  Company Number: AXC-2012-000238

PATIENT
  Age: 81 Year
  Sex: Female

DRUGS (8)
  1. MIANSERINE (MIANSERIN HYDROCHLORIDE) UNKNOWN, 10MG [Suspect]
     Indication: PRODUCT USED FOR UNKNOWN INDICATION
     Dosage: 10 MG, QD, ORAL
     Route: 048
     Dates: end: 20120418
  2. LEVOFLOXACIN [Suspect]
     Indication: ABSCESS INTESTINAL
     Dosage: 500 MG, QD, ORAL
     Route: 048
     Dates: start: 20120224, end: 20120406
  3. ALPRAZOLAM [Suspect]
     Indication: PRODUCT USED FOR UNKNOWN INDICATION
     Dosage: 0.5 MG, QD, ORAL
     Route: 048
  4. MOTILIUM /00498201/ (DOMPERIDONE) [Concomitant]
  5. SUCRALFATE [Suspect]
     Indication: PRODUCT USED FOR UNKNOWN INDICATION
     Dosage: 2 G, QD, ORAL
     Route: 048
  6. SOTALOL HCL [Suspect]
     Indication: PRODUCT USED FOR UNKNOWN INDICATION
     Dosage: 160 MG, QD, ORAL
     Route: 048
  7. NITROGLYCERIN SPRAY [Concomitant]
  8. FLAGYL [Suspect]
     Indication: ABSCESS INTESTINAL
     Dosage: 500 MG, TID, ORAL
     Route: 048
     Dates: start: 20120224, end: 20120406

REACTIONS (6)
  - BLINDNESS CORTICAL [None]
  - SPEECH DISORDER [None]
  - DIET REFUSAL [None]
  - CONFUSIONAL STATE [None]
  - ABNORMAL BEHAVIOUR [None]
  - METABOLIC ENCEPHALOPATHY [None]
